FAERS Safety Report 10420688 (Version 1)
Quarter: 2014Q3

REPORT INFORMATION
  Report Type: Spontaneous
  Country: US (occurrence: None)
  Receive Date: 20140703
  Receipt Date: 20140703
  Transmission Date: 20150326
  Serious: Yes (Death)
  Sender: FDA-Public Use
  Company Number: 2014020113

PATIENT
  Age: 57 Year
  Sex: Female

DRUGS (2)
  1. PYRROLIDINONE [Suspect]
     Active Substance: PYRROLIDONE
  2. CARISOPRODOL (CARISOPRODOL) [Suspect]
     Active Substance: CARISOPRODOL

REACTIONS (1)
  - Drug abuse [None]

NARRATIVE: CASE EVENT DATE: 2012
